FAERS Safety Report 15438779 (Version 1)
Quarter: 2018Q3

REPORT INFORMATION
  Report Type: Spontaneous
  Country: IT (occurrence: IT)
  Receive Date: 20180928
  Receipt Date: 20180928
  Transmission Date: 20181010
  Serious: Yes (Other)
  Sender: FDA-Public Use
  Company Number: IT-AUROBINDO-AUR-APL-2018-047674

PATIENT
  Age: 42 Year
  Sex: Female

DRUGS (2)
  1. PRITOR                             /01102601/ [Concomitant]
     Active Substance: TELMISARTAN
     Indication: PRODUCT USED FOR UNKNOWN INDICATION
     Dosage: UNK
     Route: 048
  2. AMOXICILLIN+CLAVULANIC ACID [Suspect]
     Active Substance: AMOXICILLIN\CLAVULANIC ACID
     Indication: SINUSITIS
     Dosage: 3 GRAM, DAILY
     Route: 065

REACTIONS (2)
  - Erythema [Unknown]
  - Inflammation [Unknown]

NARRATIVE: CASE EVENT DATE: 20180825
